FAERS Safety Report 5518484-4 (Version None)
Quarter: 2007Q4

REPORT INFORMATION
  Report Type: 
  Country: None (occurrence: None)
  Receive Date: 20071113
  Receipt Date: 20071113
  Transmission Date: 20080405
  Serious: No
  Sender: FDA-Public Use
  Company Number: None

PATIENT
  Age: 29 Year
  Sex: Female
  Weight: 83.9154 kg

DRUGS (1)
  1. LITHIUM CARBONATE [Suspect]
     Indication: AFFECTIVE DISORDER
     Dosage: 2 PILLS AT BEDTIME PO
     Route: 048
     Dates: start: 20051101, end: 20071112

REACTIONS (5)
  - DENTAL CARIES [None]
  - TEETH BRITTLE [None]
  - TOOTH DECALCIFICATION [None]
  - TOOTH DISCOLOURATION [None]
  - TOOTH HYPOPLASIA [None]
